FAERS Safety Report 4855216-7 (Version None)
Quarter: 2005Q4

REPORT INFORMATION
  Report Type: 
  Country: None (occurrence: None)
  Receive Date: 20051214
  Receipt Date: 20051128
  Transmission Date: 20060501
  Serious: Yes (Hospitalization)
  Sender: FDA-Public Use
  Company Number: USA0510109677

PATIENT
  Sex: Male

DRUGS (3)
  1. CYMBALTA [Suspect]
     Indication: DEPRESSION
     Dosage: 60 MG,
     Dates: start: 20050701
  2. ELAVIL [Concomitant]
  3. TOPAMAX [Concomitant]

REACTIONS (5)
  - COMA [None]
  - DRUG TOXICITY [None]
  - FALL [None]
  - HYPOTHERMIA [None]
  - RENAL FAILURE ACUTE [None]
